FAERS Safety Report 9943317 (Version 1)
Quarter: 2020Q3

REPORT INFORMATION
  Report Type: Report from Study
  Country: GB (occurrence: GB)
  Receive Date: 20140303
  Receipt Date: 20140303
  Transmission Date: 20201104
  Serious: Yes (Hospitalization, Other)
  Sender: FDA-Public Use
  Company Number: PHHY2014GB024692

PATIENT
  Age: 69 Year
  Sex: Male
  Weight: 54.8 kg

DRUGS (29)
  1. OXALIPLATIN. [Suspect]
     Active Substance: OXALIPLATIN
     Dosage: 140 MG, QW2
     Route: 042
     Dates: start: 20130410
  2. 5?FLUOROURACIL [Suspect]
     Active Substance: FLUOROURACIL
     Indication: GASTROOESOPHAGEAL CANCER
     Route: 040
     Dates: start: 20130227
  3. 5?FLUOROURACIL [Suspect]
     Active Substance: FLUOROURACIL
     Dosage: 650 MG, QW2
     Route: 040
     Dates: start: 20130514
  4. 5?FLUOROURACIL [Suspect]
     Active Substance: FLUOROURACIL
     Dosage: 3900 MG, QW2
     Route: 041
     Dates: start: 20130514
  5. CODEINE PHOSPHATE [Concomitant]
     Active Substance: CODEINE PHOSPHATE
     Indication: PAIN
     Dosage: 10 MG, UNK
     Route: 048
     Dates: start: 20130225, end: 20130409
  6. ENOXAPARIN [Concomitant]
     Active Substance: ENOXAPARIN
     Indication: DEEP VEIN THROMBOSIS
     Dosage: 80 MG, UNK
     Route: 058
     Dates: start: 20130408, end: 20130725
  7. METOCLOPRAMIDE. [Concomitant]
     Active Substance: METOCLOPRAMIDE
     Dosage: 10 MG, UNK
     Route: 048
     Dates: start: 20130227
  8. LACTULOSE. [Concomitant]
     Active Substance: LACTULOSE
     Indication: CONSTIPATION
     Dosage: 10 ML, UNK
     Route: 048
     Dates: start: 20130225
  9. 5?FLUOROURACIL [Suspect]
     Active Substance: FLUOROURACIL
     Dosage: 3900 MG, QW2
     Route: 041
     Dates: start: 20130410
  10. FLUOXETINE [Concomitant]
     Active Substance: FLUOXETINE HYDROCHLORIDE
     Indication: DEPRESSION
     Route: 048
  11. OMEPRAZOLE. [Concomitant]
     Active Substance: OMEPRAZOLE
     Indication: DYSPEPSIA
     Route: 048
  12. CODEINE PHOSPHATE [Concomitant]
     Active Substance: CODEINE PHOSPHATE
     Dosage: 30 MG, UNK
     Route: 048
     Dates: start: 20130410
  13. ONDANSETRON [Concomitant]
     Active Substance: ONDANSETRON
     Dosage: 8 MG, UNK
     Route: 042
     Dates: start: 20120227, end: 20130703
  14. DEXAMETHASONE. [Concomitant]
     Active Substance: DEXAMETHASONE
     Dosage: 4 MG, UNK
     Route: 048
     Dates: start: 20130228
  15. FOLINIC ACID [Suspect]
     Active Substance: LEUCOVORIN
     Indication: GASTROOESOPHAGEAL CANCER
     Route: 042
     Dates: start: 20130227
  16. 5?FLUOROURACIL [Suspect]
     Active Substance: FLUOROURACIL
     Dosage: 650 MG, QW2
     Route: 040
     Dates: start: 20130410
  17. ONARTUZUMAB. [Suspect]
     Active Substance: ONARTUZUMAB
     Route: 042
     Dates: start: 20130514
  18. PARACETAMOL [Concomitant]
     Active Substance: ACETAMINOPHEN
     Indication: PAIN
     Route: 048
  19. OXALIPLATIN. [Suspect]
     Active Substance: OXALIPLATIN
     Indication: GASTROOESOPHAGEAL CANCER
     Route: 042
     Dates: start: 20130227
  20. FOLINIC ACID [Suspect]
     Active Substance: LEUCOVORIN
     Dosage: 650 MG, QW2
     Route: 042
     Dates: start: 20130514
  21. ONARTUZUMAB. [Suspect]
     Active Substance: ONARTUZUMAB
     Route: 042
     Dates: start: 20130410
  22. GAVISCON ADVANCE [Concomitant]
     Active Substance: POTASSIUM BICARBONATE\SODIUM ALGINATE
     Indication: DYSPEPSIA
     Dosage: 1 TSP, UNK
     Route: 048
     Dates: start: 20130225
  23. SENNA [Concomitant]
     Active Substance: SENNA LEAF\SENNOSIDES\SENNOSIDES A AND B
     Indication: CONSTIPATION
     Dosage: 7.5 MG, UNK
     Route: 048
     Dates: start: 20130225
  24. 5?FLUOROURACIL [Suspect]
     Active Substance: FLUOROURACIL
     Route: 041
     Dates: start: 20130227
  25. TINZAPARIN [Concomitant]
     Active Substance: TINZAPARIN
     Indication: DEEP VEIN THROMBOSIS
     Dosage: 1000 IU, UNK
     Route: 058
     Dates: start: 20130325, end: 20130407
  26. OXALIPLATIN. [Suspect]
     Active Substance: OXALIPLATIN
     Dosage: 140 MG, QW2
     Route: 042
     Dates: start: 20130514
  27. FOLINIC ACID [Suspect]
     Active Substance: LEUCOVORIN
     Dosage: 650 MG, QW2
     Route: 042
     Dates: start: 20130410
  28. ONARTUZUMAB. [Suspect]
     Active Substance: ONARTUZUMAB
     Indication: GASTROOESOPHAGEAL CANCER
     Route: 042
     Dates: start: 20130227
  29. DEXAMETHASONE. [Concomitant]
     Active Substance: DEXAMETHASONE
     Dosage: 8 MG, UNK
     Route: 042
     Dates: start: 20130227, end: 20130703

REACTIONS (6)
  - Melaena [Recovered/Resolved]
  - Hypotension [Unknown]
  - Haemoptysis [Unknown]
  - Anaemia [Recovered/Resolved]
  - Neutrophil count decreased [Recovered/Resolved]
  - Haemorrhage [Recovered/Resolved]

NARRATIVE: CASE EVENT DATE: 20130422
